FAERS Safety Report 11830341 (Version 4)
Quarter: 2016Q3

REPORT INFORMATION
  Report Type: Spontaneous
  Country: US (occurrence: US)
  Receive Date: 20151214
  Receipt Date: 20160804
  Transmission Date: 20161109
  Serious: Yes (Other)
  Sender: FDA-Public Use
  Company Number: US-JNJFOC-20151115267

PATIENT
  Age: 31 Year
  Sex: Male
  Weight: 53.98 kg

DRUGS (7)
  1. LEVAQUIN [Suspect]
     Active Substance: LEVOFLOXACIN
     Indication: WOUND
     Route: 048
     Dates: start: 20041026, end: 20041031
  2. LEVAQUIN [Suspect]
     Active Substance: LEVOFLOXACIN
     Indication: SINUSITIS
     Route: 048
     Dates: start: 20041101, end: 20041111
  3. LEVAQUIN [Suspect]
     Active Substance: LEVOFLOXACIN
     Indication: SINUSITIS
     Route: 048
     Dates: start: 20040728, end: 20040806
  4. CIPRO [Suspect]
     Active Substance: CIPROFLOXACIN HYDROCHLORIDE
     Indication: PRODUCT USED FOR UNKNOWN INDICATION
     Route: 065
     Dates: start: 2007
  5. LEVAQUIN [Suspect]
     Active Substance: LEVOFLOXACIN
     Indication: SINUSITIS
     Route: 048
     Dates: start: 20041026, end: 20041031
  6. LEVAQUIN [Suspect]
     Active Substance: LEVOFLOXACIN
     Indication: WOUND
     Route: 048
     Dates: start: 20041101, end: 20041111
  7. LEVAQUIN [Suspect]
     Active Substance: LEVOFLOXACIN
     Indication: WOUND
     Route: 048
     Dates: start: 20040728, end: 20040806

REACTIONS (4)
  - Neuropathy peripheral [Not Recovered/Not Resolved]
  - Tendon rupture [Unknown]
  - Toxicity to various agents [Unknown]
  - Respiratory failure [Recovering/Resolving]

NARRATIVE: CASE EVENT DATE: 200411
